FAERS Safety Report 4371663-4 (Version None)
Quarter: 2004Q2

REPORT INFORMATION
  Report Type: 
  Country: None (occurrence: None)
  Receive Date: 20040602
  Receipt Date: 20040525
  Transmission Date: 20050107
  Serious: Yes (Other)
  Sender: FDA-Public Use
  Company Number: 200403803

PATIENT
  Sex: Female

DRUGS (1)
  1. FLEXERIL [Suspect]
     Dosage: 5 MG DAILY, ORAL
     Route: 048
     Dates: start: 20040523, end: 20040525

REACTIONS (1)
  - STEVENS-JOHNSON SYNDROME [None]
